FAERS Safety Report 12365284 (Version 1)
Quarter: 2016Q2

REPORT INFORMATION
  Report Type: Report from Study
  Country: US (occurrence: US)
  Receive Date: 20160513
  Receipt Date: 20160513
  Transmission Date: 20160815
  Serious: Yes (Hospitalization)
  Sender: FDA-Public Use
  Company Number: US-BIOGEN-2016BI00234253

PATIENT
  Sex: Female

DRUGS (1)
  1. AVONEX [Suspect]
     Active Substance: INTERFERON BETA-1A
     Indication: MULTIPLE SCLEROSIS
     Route: 030

REACTIONS (8)
  - Viral infection [Unknown]
  - Mobility decreased [Unknown]
  - Confusional state [Unknown]
  - Fall [Recovered/Resolved]
  - Dysstasia [Unknown]
  - Body temperature increased [Unknown]
  - Foot fracture [Unknown]
  - Cystitis [Unknown]
